FAERS Safety Report 6388268-6 (Version None)
Quarter: 2009Q4

REPORT INFORMATION
  Report Type: 
  Country: None (occurrence: None)
  Receive Date: 20091005
  Receipt Date: 20090928
  Transmission Date: 20100525
  Serious: Yes (Other)
  Sender: FDA-Public Use
  Company Number: US-JNJFOC-20091000051

PATIENT
  Age: 75 Year
  Sex: Male
  Weight: 90 kg

DRUGS (11)
  1. LEVOFLOXACIN [Suspect]
     Dosage: FOR 1 WEEK
     Route: 065
  2. LEVOFLOXACIN [Suspect]
     Indication: URINARY TRACT INFECTION
     Dosage: LEVOFLOXACIN WAS DISCONTINUED
     Route: 065
  3. ASPIRIN [Interacting]
     Indication: DRUG USE FOR UNKNOWN INDICATION
     Route: 065
  4. DONEPEZIL HCL [Interacting]
     Indication: DRUG USE FOR UNKNOWN INDICATION
     Route: 065
  5. CITALOPRAM HYDROBROMIDE [Interacting]
     Indication: DRUG USE FOR UNKNOWN INDICATION
     Route: 065
  6. DOXAZOSIN MESYLATE [Concomitant]
     Route: 065
  7. FOLATE [Concomitant]
     Route: 065
  8. GABAPENTIN [Concomitant]
     Route: 065
  9. DIVALPROEX SODIUM [Concomitant]
     Route: 065
  10. RANITIDINE [Concomitant]
     Route: 065
  11. VALPROIC ACID [Concomitant]
     Route: 065

REACTIONS (3)
  - CONVULSION [None]
  - DRUG INTERACTION [None]
  - INCORRECT DOSE ADMINISTERED [None]
